FAERS Safety Report 19199941 (Version 2)
Quarter: 2021Q2

REPORT INFORMATION
  Report Type: Spontaneous
  Country: PR (occurrence: PR)
  Receive Date: 20210430
  Receipt Date: 20210604
  Transmission Date: 20210717
  Serious: No
  Sender: FDA-Public Use
  Company Number: PR-PFIZER INC-2021366814

PATIENT
  Age: 10 Year
  Sex: Male

DRUGS (1)
  1. GENOTROPIN [Suspect]
     Active Substance: SOMATROPIN
     Dosage: UNK (6 DAYS A WEEK, INCREASED IT TO 1.6)

REACTIONS (2)
  - Expired device used [Unknown]
  - Drug dose omission by device [Unknown]
